FAERS Safety Report 9744909 (Version 1)
Quarter: 2013Q4

REPORT INFORMATION
  Report Type: Spontaneous
  Country: US (occurrence: US)
  Receive Date: 20131211
  Receipt Date: 20131211
  Transmission Date: 20140711
  Serious: Yes (Other)
  Sender: FDA-Public Use
  Company Number: US-ROCHE-1316447

PATIENT
  Sex: Male

DRUGS (5)
  1. XOLAIR [Suspect]
     Indication: PRODUCT USED FOR UNKNOWN INDICATION
     Route: 065
  2. NEXIUM [Concomitant]
  3. LEVOSALBUTAMOL HYDROCHLORIDE [Concomitant]
  4. SYMBICORT [Concomitant]
  5. PATANOL [Concomitant]

REACTIONS (5)
  - Lymphadenopathy [Unknown]
  - General physical health deterioration [Unknown]
  - Pain [Unknown]
  - Pruritus [Unknown]
  - Arthralgia [Unknown]
